FAERS Safety Report 13071266 (Version 1)
Quarter: 2016Q4

REPORT INFORMATION
  Report Type: Report from Study
  Country: US (occurrence: US)
  Receive Date: 20161229
  Receipt Date: 20161229
  Transmission Date: 20170207
  Serious: Yes (Other)
  Sender: FDA-Public Use
  Company Number: US-CELGENEUS-USA-2016031014

PATIENT

DRUGS (5)
  1. ABRAXANE [Suspect]
     Active Substance: PACLITAXEL
     Indication: SQUAMOUS CELL CARCINOMA OF HEAD AND NECK
     Dosage: 25 MG/SQ. METER
     Route: 041
  2. ABRAXANE [Suspect]
     Active Substance: PACLITAXEL
     Dosage: 20MG/SQ. METER
     Route: 041
  3. CETUXIMAB [Suspect]
     Active Substance: CETUXIMAB
     Dosage: 250MG/SQ. METER
     Route: 065
  4. CETUXIMAB [Suspect]
     Active Substance: CETUXIMAB
     Indication: SQUAMOUS CELL CARCINOMA OF HEAD AND NECK
     Dosage: 400MG/SQ. METER
     Route: 065
  5. CISPLATIN. [Suspect]
     Active Substance: CISPLATIN
     Indication: SQUAMOUS CELL CARCINOMA OF HEAD AND NECK
     Dosage: 20MG/SQ. METER
     Route: 065

REACTIONS (56)
  - Tumour pain [Unknown]
  - Pharyngeal stenosis [Unknown]
  - Tongue ulceration [Unknown]
  - Confusional state [Unknown]
  - Headache [Unknown]
  - Neuropathy peripheral [Unknown]
  - Dysphonia [Unknown]
  - Palmar-plantar erythrodysaesthesia syndrome [Unknown]
  - Hypocalcaemia [Unknown]
  - Platelet count decreased [Unknown]
  - Skeletal injury [Unknown]
  - Necrosis [Unknown]
  - Dysgeusia [Unknown]
  - Rash [Unknown]
  - Aspartate aminotransferase increased [Unknown]
  - Hypothyroidism [Unknown]
  - Ulcer [Unknown]
  - Alopecia [Unknown]
  - Anaemia [Unknown]
  - Tracheal pain [Unknown]
  - Pharyngeal haemorrhage [Unknown]
  - Limb injury [Unknown]
  - Candida infection [Unknown]
  - Trismus [Unknown]
  - Vomiting [Unknown]
  - Hypoalbuminaemia [Unknown]
  - Hiccups [Unknown]
  - Wound infection [Unknown]
  - Pruritus [Unknown]
  - Fibrosis [Unknown]
  - Neuralgia [Unknown]
  - Hypoacusis [Unknown]
  - Weight decreased [Unknown]
  - Blood creatinine increased [Unknown]
  - Upper gastrointestinal haemorrhage [Unknown]
  - Haemoglobin decreased [Unknown]
  - Neck pain [Unknown]
  - Ear pain [Unknown]
  - Dermatitis [Unknown]
  - Lip dry [Unknown]
  - Otorrhoea [Unknown]
  - Fatigue [Unknown]
  - Haemoptysis [Unknown]
  - Pigmentation disorder [Unknown]
  - Hypokalaemia [Unknown]
  - Blood alkaline phosphatase [Unknown]
  - Oedema [Unknown]
  - Telangiectasia [Unknown]
  - Bone marrow failure [Unknown]
  - Dry skin [Unknown]
  - Pyrexia [Unknown]
  - Muscular weakness [Unknown]
  - Oral mucosal erythema [Unknown]
  - Dry mouth [Unknown]
  - Hypomagnesaemia [Unknown]
  - Alanine aminotransferase increased [Unknown]
